FAERS Safety Report 15431282 (Version 1)
Quarter: 2018Q3

REPORT INFORMATION
  Report Type: Spontaneous
  Country: US (occurrence: US)
  Receive Date: 20180926
  Receipt Date: 20180926
  Transmission Date: 20181010
  Serious: No
  Sender: FDA-Public Use
  Company Number: US-ALLERGAN-1836993US

PATIENT
  Sex: Male
  Weight: 58.96 kg

DRUGS (1)
  1. ZENPEP [Suspect]
     Active Substance: PANCRELIPASE AMYLASE\PANCRELIPASE LIPASE\PANCRELIPASE PROTEASE
     Indication: PANCREATIC FAILURE
     Dosage: UNK, TWO WITH EACH MEAL AND ONE WITH SNACKS
     Route: 065

REACTIONS (2)
  - Diarrhoea [Unknown]
  - Weight decreased [Not Recovered/Not Resolved]
